FAERS Safety Report 13226536 (Version 1)
Quarter: 2017Q1

REPORT INFORMATION
  Report Type: Report from Study
  Country: US (occurrence: US)
  Receive Date: 20170213
  Receipt Date: 20170213
  Transmission Date: 20170428
  Serious: Yes (Other)
  Sender: FDA-Public Use
  Company Number: US-AMGEN-USASL2016061185

PATIENT
  Age: 73 Year
  Sex: Female

DRUGS (1)
  1. REPATHA [Suspect]
     Active Substance: EVOLOCUMAB
     Indication: HYPERCHOLESTEROLAEMIA
     Dosage: 140 MG, Q2WK (TWICE MONTHLY)
     Route: 065

REACTIONS (10)
  - Dizziness [Unknown]
  - Abdominal wound dehiscence [Unknown]
  - Skin lesion [Unknown]
  - Muscle spasms [Unknown]
  - Memory impairment [Unknown]
  - Nodule [Unknown]
  - Pruritus [Unknown]
  - Adverse event [Unknown]
  - Skin irritation [Unknown]
  - Pain in extremity [Unknown]
